FAERS Safety Report 9056490 (Version 1)
Quarter: 2013Q1

REPORT INFORMATION
  Report Type: Spontaneous
  Country: FR (occurrence: FR)
  Receive Date: 20130204
  Receipt Date: 20130204
  Transmission Date: 20140127
  Serious: Yes (Life-Threatening)
  Sender: FDA-Public Use
  Company Number: FR-PFIZER INC-2013042452

PATIENT
  Age: 62 Year
  Sex: Male

DRUGS (3)
  1. CISPLATIN [Suspect]
     Dosage: UNK
     Route: 042
     Dates: start: 20130107, end: 20130107
  2. SOLU-MEDROL [Concomitant]
     Indication: PREMEDICATION
     Dosage: 80 MG, UNK
     Dates: start: 20130107, end: 20130107
  3. SETRON [Concomitant]
     Indication: PREMEDICATION
     Dosage: 8 MG, UNK
     Dates: start: 20130107, end: 20130107

REACTIONS (2)
  - Erythema [Recovered/Resolved]
  - Pruritus [Recovered/Resolved]
